FAERS Safety Report 5702503-6 (Version None)
Quarter: 2008Q2

REPORT INFORMATION
  Report Type: 
  Country: None (occurrence: None)
  Receive Date: 20080411
  Receipt Date: 20080402
  Transmission Date: 20081010
  Serious: Yes (Hospitalization)
  Sender: FDA-Public Use
  Company Number: SE-JNJFOC-20080401220

PATIENT
  Age: 69 Year
  Sex: Female

DRUGS (14)
  1. REMICADE [Suspect]
     Indication: RHEUMATOID ARTHRITIS
     Route: 042
  2. TRAMADOL HCL [Concomitant]
     Route: 048
  3. SELOKEN [Concomitant]
     Route: 048
  4. SIMVASTATIN [Concomitant]
     Route: 048
  5. OMEPRAZOLE [Concomitant]
     Route: 048
  6. GLYTRIN [Concomitant]
     Route: 048
  7. FOLACIN [Concomitant]
     Route: 048
  8. METHOTREXATE [Concomitant]
     Route: 048
  9. IBUMETIN [Concomitant]
     Route: 048
  10. ASPIRIN [Concomitant]
     Route: 048
  11. TRIATEC [Concomitant]
     Route: 048
  12. CALICHEW [Concomitant]
     Route: 048
  13. SINCON [Concomitant]
     Route: 047
  14. PLAVIX [Concomitant]
     Route: 048

REACTIONS (1)
  - GENITOURINARY TRACT NEOPLASM [None]
